FAERS Safety Report 6014013-X (Version None)
Quarter: 2008Q4

REPORT INFORMATION
  Report Type: 
  Country: None (occurrence: None)
  Receive Date: 20081219
  Receipt Date: 20080414
  Transmission Date: 20090506
  Serious: No
  Sender: FDA-Public Use
  Company Number: A0664841A

PATIENT
  Age: 85 Year
  Sex: Male

DRUGS (6)
  1. AVODART [Suspect]
     Indication: BENIGN PROSTATIC HYPERPLASIA
     Dosage: .5MG PER DAY
     Route: 048
     Dates: start: 20071001
  2. LISINOPRIL [Concomitant]
  3. COUMADIN [Concomitant]
  4. METOPROLOL TARTRATE [Concomitant]
  5. FUROSEMIDE INTENSOL [Concomitant]
  6. POTASSIUM CHLORIDE [Concomitant]

REACTIONS (2)
  - PRODUCT QUALITY ISSUE [None]
  - THROAT IRRITATION [None]
